FAERS Safety Report 9109309 (Version 1)
Quarter: 2013Q1

REPORT INFORMATION
  Report Type: Spontaneous
  Country: CO (occurrence: CO)
  Receive Date: 20130222
  Receipt Date: 20130222
  Transmission Date: 20140127
  Serious: Yes (Death)
  Sender: FDA-Public Use
  Company Number: CO-UCBSA-078862

PATIENT
  Age: 65 Year
  Sex: Male

DRUGS (3)
  1. NEUPRO [Suspect]
     Indication: PARKINSON^S DISEASE
     Route: 062
     Dates: start: 20130114, end: 20130208
  2. PRAMIPEXOL [Concomitant]
     Dosage: 3MG/DAY
  3. PRAMIPEXOL [Concomitant]
     Dosage: UNKNOWN DOSE

REACTIONS (4)
  - Death [Fatal]
  - Dizziness [Unknown]
  - Asthenia [Unknown]
  - Musculoskeletal stiffness [Unknown]
